FAERS Safety Report 22198704 (Version 2)
Quarter: 2023Q2

REPORT INFORMATION
  Report Type: Other
  Country: US (occurrence: None)
  Receive Date: 20230411
  Receipt Date: 20230515
  Transmission Date: 20230722
  Serious: Yes (Other)
  Sender: FDA-Public Use
  Company Number: US-ROCHE-3328200

PATIENT
  Age: 58 Year
  Sex: Female
  Weight: 83.99 kg

DRUGS (3)
  1. OCREVUS [Suspect]
     Active Substance: OCRELIZUMAB
     Indication: Relapsing-remitting multiple sclerosis
     Dosage: YES
     Route: 042
  2. TOPAMAX [Concomitant]
     Active Substance: TOPIRAMATE
  3. BACLOFEN [Concomitant]
     Active Substance: BACLOFEN

REACTIONS (1)
  - COVID-19 pneumonia [Recovered/Resolved]

NARRATIVE: CASE EVENT DATE: 20230201
